FAERS Safety Report 7504360-4 (Version None)
Quarter: 2011Q2

REPORT INFORMATION
  Report Type: 
  Country: None (occurrence: None)
  Receive Date: 20110525
  Receipt Date: 20110512
  Transmission Date: 20111010
  Serious: Yes (Hospitalization)
  Sender: FDA-Public Use
  Company Number: JP-UCBSA-031990

PATIENT
  Sex: Female

DRUGS (18)
  1. CERTOLIZUMAB PEGOL [Suspect]
     Indication: RHEUMATOID ARTHRITIS
     Route: 058
     Dates: start: 20091112, end: 20110331
  2. SODIUM AZULENE SULFONATE_L-GLUTAMINE [Concomitant]
     Dates: start: 20100722
  3. MOXIFLOXACIN HYDROCHLORIDE [Concomitant]
     Dates: start: 20110423, end: 20110425
  4. CERTOLIZUMAB PEGOL [Suspect]
     Dosage: UNKNOWN
     Dates: start: 20090709, end: 20091028
  5. FLUVASTATIN SODIUM [Concomitant]
  6. CEFPODOXIME PROXETIL [Concomitant]
     Dates: start: 20110405, end: 20110407
  7. ACETAMINOPHEN [Concomitant]
     Dosage: 3 TABS/DAY
     Dates: start: 20110405, end: 20110415
  8. CALCITRIOL [Concomitant]
  9. PRANLUKAST [Suspect]
     Indication: INTERSTITIAL LUNG DISEASE
     Route: 048
     Dates: start: 20110405, end: 20110415
  10. SODIUM AZULENE SULFONATE_L-GLUTAMINE [Concomitant]
     Dosage: 2 GM DAILY
     Dates: start: 20100722
  11. LOXOPROFEN SODIUM [Concomitant]
     Dates: start: 20090611
  12. FEXOFENADINE HCL [Concomitant]
     Dates: start: 20100528
  13. ACETAMINOPHEN [Concomitant]
     Dosage: 3 TABS/DAY
     Dates: start: 20110423, end: 20110425
  14. MOXIFLOXACIN HYDROCHLORIDE [Concomitant]
     Dates: start: 20110408, end: 20110415
  15. PRANLUKAST [Suspect]
     Route: 048
     Dates: start: 20110423, end: 20110425
  16. CANDESARTAN CILEXETIL [Concomitant]
  17. MANIDIPINE HYDROCHLORIDE [Concomitant]
  18. RIMATIL [Suspect]
     Indication: RHEUMATOID ARTHRITIS
     Route: 048
     Dates: start: 20090918

REACTIONS (1)
  - INTERSTITIAL LUNG DISEASE [None]
